FAERS Safety Report 16227167 (Version 1)
Quarter: 2019Q2

REPORT INFORMATION
  Report Type: Spontaneous
  Country: US (occurrence: US)
  Receive Date: 20190423
  Receipt Date: 20190423
  Transmission Date: 20190711
  Serious: Yes (Hospitalization, Other)
  Sender: FDA-Public Use
  Company Number: US-APOTEX-2019AP012315

PATIENT

DRUGS (1)
  1. FLECAINIDE [Suspect]
     Active Substance: FLECAINIDE
     Indication: SUPRAVENTRICULAR TACHYCARDIA
     Dosage: UNK
     Route: 065

REACTIONS (5)
  - Mental status changes [Recovered/Resolved]
  - Ventricular dysfunction [Recovered/Resolved]
  - Product administration error [Unknown]
  - Electrocardiogram QRS complex prolonged [Recovered/Resolved]
  - Accidental overdose [Unknown]
